FAERS Safety Report 19470104 (Version 1)
Quarter: 2021Q2

REPORT INFORMATION
  Report Type: Spontaneous
  Country: ZA (occurrence: ZA)
  Receive Date: 20210629
  Receipt Date: 20210629
  Transmission Date: 20210717
  Serious: Yes (Other)
  Sender: FDA-Public Use
  Company Number: ZA-NOVOPROD-823223

PATIENT
  Age: 76 Year
  Sex: Female

DRUGS (6)
  1. PREXUM PLUS [INDAPAMIDE;PERINDOPRIL ERBUMINE] [Concomitant]
     Active Substance: INDAPAMIDE\PERINDOPRIL ERBUMINE
     Indication: HYPERTENSION
     Dosage: 5/ 1.25 MG
     Route: 048
  2. OMEZ [OMEPRAZOLE MAGNESIUM] [Concomitant]
     Active Substance: OMEPRAZOLE MAGNESIUM
     Indication: ULCER
     Dosage: 20 MG
     Route: 048
  3. LENDITRO [Concomitant]
     Active Substance: OXYBUTYNIN CHLORIDE
     Indication: URINARY INCONTINENCE
     Dosage: 5 MG
     Route: 048
     Dates: start: 202106
  4. CELEBREX [Concomitant]
     Active Substance: CELECOXIB
     Indication: PAIN
     Dosage: 200 MG
     Route: 048
  5. BILOCOR [Concomitant]
     Active Substance: BISOPROLOL FUMARATE
     Indication: HYPERTENSION
     Dosage: 5 MG
     Route: 048
  6. VAGIFEM [Suspect]
     Active Substance: ESTRADIOL
     Indication: HORMONE THERAPY
     Dosage: 10 ?G
     Route: 048

REACTIONS (2)
  - Prolapse [Unknown]
  - Mass [Unknown]
